FAERS Safety Report 25468966 (Version 1)
Quarter: 2025Q2

REPORT INFORMATION
  Report Type: Spontaneous
  Country: DE (occurrence: DE)
  Receive Date: 20250623
  Receipt Date: 20250623
  Transmission Date: 20250716
  Serious: Yes (Hospitalization, Other)
  Sender: MYLAN
  Company Number: DE-SANDOZ-SDZ2025DE039761

PATIENT
  Sex: Female

DRUGS (64)
  1. CELECOXIB [Suspect]
     Active Substance: CELECOXIB
     Indication: Psoriatic arthropathy
  2. CELECOXIB [Suspect]
     Active Substance: CELECOXIB
  3. CELECOXIB [Suspect]
     Active Substance: CELECOXIB
     Route: 065
  4. CELECOXIB [Suspect]
     Active Substance: CELECOXIB
     Route: 065
  5. CELECOXIB [Suspect]
     Active Substance: CELECOXIB
     Dates: start: 20201111, end: 20201215
  6. CELECOXIB [Suspect]
     Active Substance: CELECOXIB
     Dates: start: 20201111, end: 20201215
  7. CELECOXIB [Suspect]
     Active Substance: CELECOXIB
     Route: 065
     Dates: start: 20201111, end: 20201215
  8. CELECOXIB [Suspect]
     Active Substance: CELECOXIB
     Route: 065
     Dates: start: 20201111, end: 20201215
  9. IBUPROFEN [Suspect]
     Active Substance: IBUPROFEN
     Indication: Psoriatic arthropathy
  10. IBUPROFEN [Suspect]
     Active Substance: IBUPROFEN
  11. IBUPROFEN [Suspect]
     Active Substance: IBUPROFEN
     Route: 065
  12. IBUPROFEN [Suspect]
     Active Substance: IBUPROFEN
     Route: 065
  13. IBUPROFEN [Suspect]
     Active Substance: IBUPROFEN
     Dates: start: 20240209, end: 20240229
  14. IBUPROFEN [Suspect]
     Active Substance: IBUPROFEN
     Dates: start: 20240209, end: 20240229
  15. IBUPROFEN [Suspect]
     Active Substance: IBUPROFEN
     Route: 065
     Dates: start: 20240209, end: 20240229
  16. IBUPROFEN [Suspect]
     Active Substance: IBUPROFEN
     Route: 065
     Dates: start: 20240209, end: 20240229
  17. NAPROXEN [Suspect]
     Active Substance: NAPROXEN
     Indication: Psoriatic arthropathy
  18. NAPROXEN [Suspect]
     Active Substance: NAPROXEN
  19. NAPROXEN [Suspect]
     Active Substance: NAPROXEN
     Route: 065
  20. NAPROXEN [Suspect]
     Active Substance: NAPROXEN
     Route: 065
  21. NAPROXEN [Suspect]
     Active Substance: NAPROXEN
     Dates: start: 20240301, end: 20241015
  22. NAPROXEN [Suspect]
     Active Substance: NAPROXEN
     Dates: start: 20240301, end: 20241015
  23. NAPROXEN [Suspect]
     Active Substance: NAPROXEN
     Route: 065
     Dates: start: 20240301, end: 20241015
  24. NAPROXEN [Suspect]
     Active Substance: NAPROXEN
     Route: 065
     Dates: start: 20240301, end: 20241015
  25. ARAVA [Suspect]
     Active Substance: LEFLUNOMIDE
     Indication: Psoriatic arthropathy
  26. ARAVA [Suspect]
     Active Substance: LEFLUNOMIDE
  27. ARAVA [Suspect]
     Active Substance: LEFLUNOMIDE
     Route: 065
  28. ARAVA [Suspect]
     Active Substance: LEFLUNOMIDE
     Route: 065
  29. ARAVA [Suspect]
     Active Substance: LEFLUNOMIDE
     Route: 065
  30. ARAVA [Suspect]
     Active Substance: LEFLUNOMIDE
     Route: 065
  31. ARAVA [Suspect]
     Active Substance: LEFLUNOMIDE
  32. ARAVA [Suspect]
     Active Substance: LEFLUNOMIDE
  33. ARAVA [Suspect]
     Active Substance: LEFLUNOMIDE
     Route: 065
  34. ARAVA [Suspect]
     Active Substance: LEFLUNOMIDE
  35. ARAVA [Suspect]
     Active Substance: LEFLUNOMIDE
  36. ARAVA [Suspect]
     Active Substance: LEFLUNOMIDE
     Route: 065
  37. ARAVA [Suspect]
     Active Substance: LEFLUNOMIDE
     Route: 065
  38. ARAVA [Suspect]
     Active Substance: LEFLUNOMIDE
     Route: 065
  39. ARAVA [Suspect]
     Active Substance: LEFLUNOMIDE
  40. ARAVA [Suspect]
     Active Substance: LEFLUNOMIDE
  41. ARAVA [Suspect]
     Active Substance: LEFLUNOMIDE
     Route: 065
  42. ARAVA [Suspect]
     Active Substance: LEFLUNOMIDE
  43. ARAVA [Suspect]
     Active Substance: LEFLUNOMIDE
  44. ARAVA [Suspect]
     Active Substance: LEFLUNOMIDE
     Route: 065
  45. ARAVA [Suspect]
     Active Substance: LEFLUNOMIDE
     Route: 065
  46. ARAVA [Suspect]
     Active Substance: LEFLUNOMIDE
     Route: 065
  47. ARAVA [Suspect]
     Active Substance: LEFLUNOMIDE
  48. ARAVA [Suspect]
     Active Substance: LEFLUNOMIDE
  49. ARAVA [Suspect]
     Active Substance: LEFLUNOMIDE
  50. ARAVA [Suspect]
     Active Substance: LEFLUNOMIDE
  51. ARAVA [Suspect]
     Active Substance: LEFLUNOMIDE
     Route: 065
  52. ARAVA [Suspect]
     Active Substance: LEFLUNOMIDE
     Route: 065
  53. ARAVA [Suspect]
     Active Substance: LEFLUNOMIDE
     Route: 065
  54. ARAVA [Suspect]
     Active Substance: LEFLUNOMIDE
  55. ARAVA [Suspect]
     Active Substance: LEFLUNOMIDE
  56. ARAVA [Suspect]
     Active Substance: LEFLUNOMIDE
     Route: 065
  57. ARAVA [Suspect]
     Active Substance: LEFLUNOMIDE
     Route: 065
     Dates: start: 20201111, end: 20240301
  58. ARAVA [Suspect]
     Active Substance: LEFLUNOMIDE
     Route: 065
     Dates: start: 20201111, end: 20240301
  59. ARAVA [Suspect]
     Active Substance: LEFLUNOMIDE
     Dates: start: 20201111, end: 20240301
  60. ARAVA [Suspect]
     Active Substance: LEFLUNOMIDE
     Dates: start: 20201111, end: 20240301
  61. SIMPONI [Suspect]
     Active Substance: GOLIMUMAB
     Indication: Psoriatic arthropathy
  62. SIMPONI [Suspect]
     Active Substance: GOLIMUMAB
     Route: 065
  63. SIMPONI [Suspect]
     Active Substance: GOLIMUMAB
     Route: 065
  64. SIMPONI [Suspect]
     Active Substance: GOLIMUMAB

REACTIONS (2)
  - Arthritis bacterial [Unknown]
  - Foot deformity [Unknown]
